FAERS Safety Report 8903154 (Version 2)
Quarter: 2012Q4

REPORT INFORMATION
  Report Type: Report from Study
  Country: AU (occurrence: AU)
  Receive Date: 20121113
  Receipt Date: 20121205
  Transmission Date: 20130627
  Serious: Yes (Hospitalization, Disabling)
  Sender: FDA-Public Use
  Company Number: AU-PFIZER INC-2012279411

PATIENT
  Age: 75 Year
  Sex: Male
  Weight: 66 kg

DRUGS (12)
  1. LYRICA [Suspect]
     Dosage: UNK
     Dates: start: 20111104, end: 20111108
  2. DARBEPOETIN ALFA [Suspect]
     Indication: CHRONIC RENAL FAILURE ANEMIA
     Dosage: 40mg, 1 in 2 wk
     Route: 042
     Dates: start: 20101007
  3. IRBESARTAN [Concomitant]
     Dosage: UNK
     Dates: start: 20090302, end: 20120322
  4. METOPROLOL [Concomitant]
     Dosage: UNK
     Dates: start: 20061205
  5. ATORVASTATIN [Concomitant]
     Dosage: UNK
     Dates: start: 20060127
  6. PANADOL [Concomitant]
     Dosage: UNK
     Dates: start: 20080708, end: 20120321
  7. VITAMIN B COMPLEX [Concomitant]
     Dosage: UNK
     Dates: start: 20061201
  8. AVANZA [Concomitant]
     Dosage: UNK
     Dates: start: 20080708, end: 20120321
  9. NITROGLYCERIN [Concomitant]
     Dosage: UNK
     Dates: start: 20060201, end: 20120321
  10. SEVELAMER [Concomitant]
     Dosage: UNK
     Dates: start: 20090114, end: 20120321
  11. MYLANTA DOUBLE STRENGTH [Concomitant]
     Dosage: UNK
     Dates: start: 20060602
  12. NEXIUM [Concomitant]
     Dosage: UNK
     Dates: start: 20090318

REACTIONS (4)
  - Delirium [Recovered/Resolved]
  - Back pain [Recovered/Resolved]
  - Medical device pain [Recovered/Resolved]
  - Medical device pain [Recovered/Resolved]
